FAERS Safety Report 5385085-0 (Version None)
Quarter: 2007Q3

REPORT INFORMATION
  Report Type: 
  Country: None (occurrence: None)
  Receive Date: 20070710
  Receipt Date: 20070710
  Transmission Date: 20080115
  Serious: Yes (Death)
  Sender: FDA-Public Use
  Company Number: None

PATIENT
  Age: 66 Year
  Sex: Male
  Weight: 75.2971 kg

DRUGS (1)
  1. ERLOTINIB TAB 100MGM BY MOUTH GENENTECH [Suspect]
     Indication: PANCREATIC CARCINOMA
     Dosage: 100MGM EVERY DAY ORAL
     Route: 048
     Dates: start: 20070601

REACTIONS (5)
  - LUNG INFILTRATION [None]
  - OXYGEN SATURATION DECREASED [None]
  - PNEUMONIA [None]
  - PROCEDURAL COMPLICATION [None]
  - PULMONARY EMBOLISM [None]
